FAERS Safety Report 7297437-2 (Version None)
Quarter: 2011Q1

REPORT INFORMATION
  Report Type: 
  Country: None (occurrence: None)
  Receive Date: 20110216
  Receipt Date: 20110209
  Transmission Date: 20110831
  Serious: Yes (Other)
  Sender: FDA-Public Use
  Company Number: BR-PFIZER INC-2011029757

PATIENT
  Sex: Female

DRUGS (1)
  1. CHAMPIX [Suspect]
     Route: 048

REACTIONS (9)
  - CONFUSIONAL STATE [None]
  - MYALGIA [None]
  - ABDOMINAL DISTENSION [None]
  - FEELING ABNORMAL [None]
  - HEADACHE [None]
  - DIZZINESS [None]
  - ABDOMINAL PAIN UPPER [None]
  - ILEUS PARALYTIC [None]
  - DRUG INEFFECTIVE [None]
